FAERS Safety Report 21611046 (Version 2)
Quarter: 2022Q4

REPORT INFORMATION
  Report Type: Spontaneous
  Country: IT (occurrence: IT)
  Receive Date: 20221117
  Receipt Date: 20221222
  Transmission Date: 20230113
  Serious: Yes (Hospitalization, Other)
  Sender: FDA-Public Use
  Company Number: IT-009507513-2211ITA004936

PATIENT
  Age: 45 Day
  Sex: Female

DRUGS (8)
  1. BRIDION [Suspect]
     Active Substance: SUGAMMADEX
     Indication: Neuromuscular blockade reversal
     Dosage: 3 MILLIGRAM/KILOGRAM
     Dates: start: 20221114, end: 20221114
  2. BRIDION [Suspect]
     Active Substance: SUGAMMADEX
     Dosage: SECOND DOSE
     Dates: start: 20221114, end: 20221114
  3. ROCURONIUM BROMIDE [Suspect]
     Active Substance: ROCURONIUM BROMIDE
     Indication: Muscle relaxant therapy
     Dosage: AT A TOTAL DOSAGE OF 2MG FOR INTUBATION AND MAINTENANCE/ INTUBATED WITH TUBE 3.5
     Dates: start: 20221114, end: 20221114
  4. FENTANYL [Concomitant]
     Active Substance: FENTANYL
     Indication: Analgesic therapy
     Dosage: 6 MICROGRAM
     Dates: start: 20221114, end: 20221114
  5. PROPOFOL [Concomitant]
     Active Substance: PROPOFOL
     Indication: Sedation
     Dosage: 5 MILLIGRAM
     Dates: start: 20221114, end: 20221114
  6. SEVOFLURANE [Concomitant]
     Active Substance: SEVOFLURANE
     Dosage: 1.5 PERCENT
     Dates: start: 20221114, end: 20221114
  7. DEXAMETHASONE [Concomitant]
     Active Substance: DEXAMETHASONE
     Dosage: 0.6 MILLIGRAM
     Dates: start: 20221114, end: 20221114
  8. IOPAMIRO [Concomitant]
     Active Substance: IOPAMIDOL
     Dosage: UNK
     Dates: start: 20221114, end: 20221114

REACTIONS (4)
  - Recurrence of neuromuscular blockade [Recovered/Resolved]
  - Drug ineffective [Recovered/Resolved]
  - Product administered to patient of inappropriate age [Unknown]
  - Extra dose administered [Unknown]

NARRATIVE: CASE EVENT DATE: 20221114
